FAERS Safety Report 6159861-0 (Version None)
Quarter: 2009Q2

REPORT INFORMATION
  Report Type: 
  Country: None (occurrence: None)
  Receive Date: 20090415
  Receipt Date: 20090327
  Transmission Date: 20091009
  Serious: Yes (Hospitalization)
  Sender: FDA-Public Use
  Company Number: WAES 0904USA01068

PATIENT

DRUGS (10)
  1. PRINIVIL [Suspect]
     Route: 048
  2. SAXAGLIPTIN [Suspect]
     Indication: TYPE 2 DIABETES MELLITUS
     Dosage: 2.5 MG
     Route: 048
  3. FOSINOPRIL SODIUM [Suspect]
  4. NEBIVOLOL HCL [Suspect]
  5. TORSEMIDE [Suspect]
  6. DOXAZOSIN GENERICON (DOXAZOSIN MESYLATE) [Suspect]
  7. CARMEN (LERCANIDIPINE HYDROCHLORIDE) [Suspect]
  8. PLACEBO [Suspect]
     Indication: TYPE 2 DIABETES MELLITUS
  9. INSUMAN COMB 25 [Concomitant]
  10. ASPIRIN [Concomitant]

REACTIONS (11)
  - ABDOMINAL PAIN UPPER [None]
  - BLOOD CREATINE INCREASED [None]
  - BLOOD UREA INCREASED [None]
  - BUNDLE BRANCH BLOCK LEFT [None]
  - LEFT VENTRICULAR FAILURE [None]
  - LOSS OF CONSCIOUSNESS [None]
  - ORTHOSTATIC HYPOTENSION [None]
  - PLEURAL EFFUSION [None]
  - PNEUMONIA [None]
  - PULMONARY CONGESTION [None]
  - PULMONARY OEDEMA [None]
